FAERS Safety Report 8390611-3 (Version None)
Quarter: 2012Q2

REPORT INFORMATION
  Report Type: 
  Country: None (occurrence: None)
  Receive Date: 20120529
  Receipt Date: 20120521
  Transmission Date: 20120825
  Serious: Yes (Hospitalization, Other)
  Sender: FDA-Public Use
  Company Number: US-BAYER-201036855NA

PATIENT
  Age: 31 Year
  Sex: Female
  Weight: 93 kg

DRUGS (10)
  1. PPD DISPOSABLE [Concomitant]
     Dosage: UNK
     Route: 058
     Dates: start: 20080801
  2. FLUOXETINE [Concomitant]
     Indication: DEPRESSION
     Dates: start: 20080701
  3. BUPROPION HCL [Concomitant]
     Indication: DEPRESSION
     Dates: start: 20080701
  4. YASMIN [Suspect]
     Indication: ORAL CONTRACEPTION
     Dosage: UNK UNK, QD
     Route: 048
     Dates: start: 20040801, end: 20080701
  5. BUPROPION HCL [Concomitant]
  6. IBUPROFEN [Concomitant]
     Dates: start: 20080301
  7. LOVENOX [Concomitant]
     Indication: PULMONARY EMBOLISM
  8. COUMADIN [Concomitant]
     Indication: PULMONARY EMBOLISM
  9. DICYCLOMINE [Concomitant]
  10. PROZAC [Concomitant]

REACTIONS (4)
  - PULMONARY EMBOLISM [None]
  - CHEST PAIN [None]
  - DYSPNOEA [None]
  - DEEP VEIN THROMBOSIS [None]
